FAERS Safety Report 5643293-5 (Version None)
Quarter: 2008Q1

REPORT INFORMATION
  Report Type: 
  Country: None (occurrence: None)
  Receive Date: 20080228
  Receipt Date: 20080227
  Transmission Date: 20080703
  Serious: Yes (Life-Threatening, Hospitalization, Other)
  Sender: FDA-Public Use
  Company Number: AU-JNJFOC-20080201432

PATIENT
  Age: 89 Year
  Sex: Male

DRUGS (6)
  1. REMINYL [Suspect]
     Indication: DRUG USE FOR UNKNOWN INDICATION
  2. RAMACE [Concomitant]
  3. ACIMAX [Concomitant]
  4. PLAVIX [Concomitant]
  5. GLUCOSAMINE [Concomitant]
  6. ACTONEL [Concomitant]

REACTIONS (2)
  - GASTROINTESTINAL HAEMORRHAGE [None]
  - METASTATIC SQUAMOUS CELL CARCINOMA [None]
